FAERS Safety Report 8964866 (Version 1)
Quarter: 2012Q4

REPORT INFORMATION
  Report Type: Report from Study
  Country: FR (occurrence: FR)
  Receive Date: 20121214
  Receipt Date: 20121214
  Transmission Date: 20130627
  Serious: Yes (Hospitalization)
  Sender: FDA-Public Use
  Company Number: FR-ROCHE-1168617

PATIENT
  Age: 69 Year
  Sex: Male

DRUGS (7)
  1. RITUXIMAB [Suspect]
     Indication: CHRONIC LYMPHOCYTIC LEUKAEMIA
     Route: 041
     Dates: start: 20110112
  2. RITUXIMAB [Suspect]
     Dosage: last dose prior to SAE: 28/Dec/2011
     Route: 041
     Dates: start: 20110620, end: 20111228
  3. CYCLOPHOSPHAMIDE [Suspect]
     Indication: CHRONIC LYMPHOCYTIC LEUKAEMIA
     Route: 065
  4. FLUDARABINE [Suspect]
     Indication: CHRONIC LYMPHOCYTIC LEUKAEMIA
     Route: 065
  5. BACTRIM FORTE [Concomitant]
     Route: 065
  6. BACTRIM FORTE [Concomitant]
     Route: 065
  7. ZELITREX [Concomitant]
     Route: 065

REACTIONS (2)
  - Anaemia [Unknown]
  - Bronchopneumopathy [Unknown]
